FAERS Safety Report 4505863-7 (Version None)
Quarter: 2004Q4

REPORT INFORMATION
  Report Type: 
  Country: None (occurrence: None)
  Receive Date: 20041025
  Receipt Date: 20040115
  Transmission Date: 20050328
  Serious: Yes (Other)
  Sender: FDA-Public Use
  Company Number: US-JNJFOC-20040102281

PATIENT
  Age: 67 Year
  Sex: Male
  Weight: 81.6475 kg

DRUGS (7)
  1. REMICADE [Suspect]
     Indication: RHEUMATOID ARTHRITIS
     Dosage: 300 MG, INTRAVENOUS
     Route: 042
     Dates: start: 20030205
  2. REMICADE [Suspect]
     Indication: RHEUMATOID ARTHRITIS
     Dosage: 300 MG, INTRAVENOUS
     Route: 042
     Dates: start: 20031210
  3. PLAQUENIL [Concomitant]
  4. PREDNISONE [Concomitant]
  5. IUPROFEN (IBUPROFEN) [Concomitant]
  6. VERAPAMIL [Concomitant]
  7. LOPRESSOR [Concomitant]

REACTIONS (1)
  - MONONEURITIS [None]
